FAERS Safety Report 8805334 (Version 4)
Quarter: 2012Q4

REPORT INFORMATION
  Report Type: 
  Country: DE (occurrence: DE)
  Receive Date: 20120924
  Receipt Date: 20121102
  Transmission Date: 20130627
  Serious: Yes (Other)
  Sender: FDA-Public Use
  Company Number: DE-ROCHE-1130019

PATIENT
  Sex: Female

DRUGS (1)
  1. LUCENTIS [Suspect]
     Indication: AGE-RELATED MACULAR DEGENERATION
     Route: 050
     Dates: start: 2011

REACTIONS (9)
  - Macular degeneration [Not Recovered/Not Resolved]
  - Retinal disorder [Not Recovered/Not Resolved]
  - Drug ineffective [Unknown]
  - Retinal detachment [Not Recovered/Not Resolved]
  - Tinnitus [Not Recovered/Not Resolved]
  - Cataract [Not Recovered/Not Resolved]
  - Visual impairment [Not Recovered/Not Resolved]
  - Incorrect drug dosage form administered [Unknown]
  - Incorrect dose administered [Unknown]
